FAERS Safety Report 4472275-4 (Version None)
Quarter: 2004Q4

REPORT INFORMATION
  Report Type: 
  Country: None (occurrence: None)
  Receive Date: 20041007
  Receipt Date: 20040930
  Transmission Date: 20050328
  Serious: Yes (Hospitalization, Disabling)
  Sender: FDA-Public Use
  Company Number: TPA2004A01185

PATIENT
  Age: 62 Year
  Sex: Female
  Weight: 90.7194 kg

DRUGS (4)
  1. ACTOS [Suspect]
     Indication: DIABETES MELLITUS NON-INSULIN-DEPENDENT
     Dosage: 45 MG, 1 IN 1 D, PER ORAL
     Route: 048
  2. HUMALOG (INSULIN LISPRO) (12 IU (INTERNATIONAL UNIT), INJECTION) [Concomitant]
  3. ACCUPRIL (QUINAPRIL HYDROCHLORIDE) (20 MILLIGRAM) [Concomitant]
  4. LIPITOR (ATORVASTATIN) (20 MILLIGRAM) [Concomitant]

REACTIONS (5)
  - ARTHRITIS [None]
  - BLOOD GLUCOSE DECREASED [None]
  - CONDITION AGGRAVATED [None]
  - INFLAMMATION [None]
  - INTERVERTEBRAL DISC DEGENERATION [None]
